FAERS Safety Report 7047757-1 (Version None)
Quarter: 2010Q4

REPORT INFORMATION
  Report Type: 
  Country: None (occurrence: None)
  Receive Date: 20101015
  Receipt Date: 20101012
  Transmission Date: 20110411
  Serious: Yes (Other)
  Sender: FDA-Public Use
  Company Number: US-PFIZER INC-2010129681

PATIENT
  Sex: Male
  Weight: 102 kg

DRUGS (8)
  1. CELEBREX [Suspect]
     Indication: INTERVERTEBRAL DISC PROTRUSION
     Dosage: 200 MG, UNK
     Route: 048
     Dates: start: 20020101
  2. VYTORIN [Suspect]
     Indication: BLOOD CHOLESTEROL INCREASED
     Dosage: UNK
     Dates: end: 20091101
  3. IMIPRAMINE HYDROCHLORIDE [Suspect]
     Indication: IRRITABLE BOWEL SYNDROME
     Dosage: 50 MG, UNK
  4. IMIPRAMINE HYDROCHLORIDE [Suspect]
     Indication: COLITIS ULCERATIVE
  5. METFORMIN [Concomitant]
     Indication: DIABETES MELLITUS
     Dosage: UNK
     Dates: start: 20000101, end: 20091101
  6. MULTI-VITAMINS [Concomitant]
     Dosage: UNK
  7. NIACIN [Concomitant]
     Dosage: 500 MG, UNK
  8. ACETYLSALICYLIC ACID [Concomitant]
     Dosage: 81 MG, 1X/DAY

REACTIONS (3)
  - COLITIS ULCERATIVE [None]
  - CONSTIPATION [None]
  - IRRITABLE BOWEL SYNDROME [None]
